FAERS Safety Report 5532994-5 (Version None)
Quarter: 2007Q4

REPORT INFORMATION
  Report Type: 
  Country: None (occurrence: None)
  Receive Date: 20071204
  Receipt Date: 20071126
  Transmission Date: 20080405
  Serious: Yes (Hospitalization)
  Sender: FDA-Public Use
  Company Number: JP-ASTRAZENECA-2007AP07552

PATIENT
  Age: 60 Year
  Sex: Female

DRUGS (3)
  1. IRESSA [Suspect]
     Indication: LUNG NEOPLASM MALIGNANT
     Route: 048
     Dates: start: 20051001
  2. UNKNOWN DRUG [Concomitant]
     Route: 048
     Dates: start: 20051001
  3. UNKNOWN DRUG [Concomitant]
     Route: 048
     Dates: start: 20051001

REACTIONS (1)
  - LOWER GASTROINTESTINAL HAEMORRHAGE [None]
